FAERS Safety Report 11794125 (Version 1)
Quarter: 2015Q4

REPORT INFORMATION
  Report Type: Spontaneous
  Country: GB (occurrence: GB)
  Receive Date: 20151202
  Receipt Date: 20151202
  Transmission Date: 20160305
  Serious: Yes (Death, Other)
  Sender: FDA-Public Use
  Company Number: GB-HQ SPECIALTY-GB-2015INT000660

PATIENT

DRUGS (2)
  1. CISPLATIN. [Suspect]
     Active Substance: CISPLATIN
     Indication: SQUAMOUS CELL CARCINOMA OF HEAD AND NECK
     Dosage: UNK, ON DAY 1, 21 DAY CYCLES
  2. CAPECITABINE. [Suspect]
     Active Substance: CAPECITABINE
     Indication: SQUAMOUS CELL CARCINOMA OF HEAD AND NECK
     Dosage: UNK, BID, DAY 1 TO 14, 21 DAY CYCLES

REACTIONS (4)
  - Squamous cell carcinoma of head and neck [None]
  - Malignant neoplasm progression [None]
  - Disease progression [Fatal]
  - Toxicity to various agents [Unknown]
